FAERS Safety Report 6195027-6 (Version None)
Quarter: 2009Q2

REPORT INFORMATION
  Report Type: 
  Country: None (occurrence: None)
  Receive Date: 20090519
  Receipt Date: 20090514
  Transmission Date: 20091009
  Serious: Yes (Hospitalization)
  Sender: FDA-Public Use
  Company Number: B0573974A

PATIENT
  Age: 18 Month
  Sex: Male
  Weight: 10.3 kg

DRUGS (1)
  1. ZOVIRAX [Suspect]
     Indication: ENCEPHALITIS HERPES
     Dosage: 200MG THREE TIMES PER DAY
     Route: 042
     Dates: start: 20090422, end: 20090423

REACTIONS (4)
  - DERMATITIS BULLOUS [None]
  - EXTRAVASATION [None]
  - INFUSION SITE EROSION [None]
  - OEDEMA PERIPHERAL [None]
